FAERS Safety Report 21882367 (Version 1)
Quarter: 2023Q1

REPORT INFORMATION
  Report Type: Spontaneous
  Country: AU (occurrence: AU)
  Receive Date: 20230119
  Receipt Date: 20230119
  Transmission Date: 20230418
  Serious: Yes (Other)
  Sender: FDA-Public Use
  Company Number: AU-ALKEM LABORATORIES LIMITED-AU-ALKEM-2023-00074

PATIENT
  Age: 79 Year
  Sex: Male

DRUGS (1)
  1. ROSUVASTATIN [Suspect]
     Active Substance: ROSUVASTATIN
     Indication: Product used for unknown indication
     Dosage: UNK
     Route: 065

REACTIONS (12)
  - Drug-induced liver injury [Unknown]
  - Hyperkalaemia [Unknown]
  - Muscle necrosis [Unknown]
  - Renal tubular necrosis [Unknown]
  - Chromaturia [Unknown]
  - Decreased appetite [Unknown]
  - Fatigue [Unknown]
  - Liver function test abnormal [Unknown]
  - Metabolic acidosis [Unknown]
  - Mobility decreased [Unknown]
  - Myalgia [Unknown]
  - Weight decreased [Unknown]
